FAERS Safety Report 5104771-0 (Version None)
Quarter: 2006Q3

REPORT INFORMATION
  Report Type: 
  Country: None (occurrence: None)
  Receive Date: 20060914
  Receipt Date: 20060908
  Transmission Date: 20061208
  Serious: Yes (Hospitalization)
  Sender: FDA-Public Use
  Company Number: FR-BRISTOL-MYERS SQUIBB COMPANY-13505219

PATIENT
  Age: 45 Year
  Sex: Female

DRUGS (5)
  1. VIDEX EC [Suspect]
     Indication: HIV INFECTION
     Route: 048
     Dates: end: 20060718
  2. SUSTIVA [Suspect]
     Indication: HIV INFECTION
     Route: 048
  3. EPIVIR [Suspect]
     Route: 048
     Dates: end: 20060718
  4. PEGASYS [Suspect]
     Route: 058
     Dates: start: 20060603
  5. COPEGUS [Suspect]
     Route: 048
     Dates: start: 20060603, end: 20060718

REACTIONS (2)
  - NORMOCHROMIC NORMOCYTIC ANAEMIA [None]
  - THROMBOCYTOPENIA [None]
